FAERS Safety Report 8825072 (Version 1)
Quarter: 2012Q4

REPORT INFORMATION
  Report Type: 
  Country: US (occurrence: US)
  Receive Date: 20121004
  Receipt Date: 20121004
  Transmission Date: 20130627
  Serious: Yes (Hospitalization, Other)
  Sender: FDA-Public Use
  Company Number: US-ELI_LILLY_AND_COMPANY-US201209006438

PATIENT
  Age: 75 Year
  Sex: Male

DRUGS (1)
  1. CYMBALTA [Suspect]
     Indication: DEPRESSION

REACTIONS (5)
  - Hospitalisation [Unknown]
  - Suicidal ideation [Unknown]
  - Dialysis [Unknown]
  - Drug dose omission [Recovered/Resolved]
  - Depressed mood [Recovering/Resolving]
